FAERS Safety Report 16919876 (Version 1)
Quarter: 2019Q4

REPORT INFORMATION
  Report Type: Spontaneous
  Country: US (occurrence: US)
  Receive Date: 20190822
  Receipt Date: 20190822
  Transmission Date: 20200122
  Serious: Yes (Hospitalization)
  Sender: FDA-Public Use
  Company Number: None

PATIENT
  Age: 76 Year
  Sex: Female

DRUGS (17)
  1. METRONIDAZOLE. [Concomitant]
     Active Substance: METRONIDAZOLE
  2. PRAVASTATIN. [Concomitant]
     Active Substance: PRAVASTATIN
  3. FEROSUL [Concomitant]
  4. METOPROL SUC [Concomitant]
  5. SOLIFENACIN [Concomitant]
     Active Substance: SOLIFENACIN
  6. DOXYCYCL HCL [Concomitant]
  7. PRAMIPEXOLE. [Concomitant]
     Active Substance: PRAMIPEXOLE
  8. TRAZODONE [Concomitant]
     Active Substance: TRAZODONE HYDROCHLORIDE
  9. ADCIRCA [Suspect]
     Active Substance: TADALAFIL
     Indication: PULMONARY ARTERIAL HYPERTENSION
     Route: 048
     Dates: start: 20160119
  10. TORSEMIDE. [Concomitant]
     Active Substance: TORSEMIDE
  11. VESICARE [Concomitant]
     Active Substance: SOLIFENACIN SUCCINATE
  12. ELIQUIS [Concomitant]
     Active Substance: APIXABAN
  13. PANTOPRAZOLE [Concomitant]
     Active Substance: PANTOPRAZOLE
  14. PREDNISONE. [Concomitant]
     Active Substance: PREDNISONE
  15. MYCOPHENOLATE [Concomitant]
     Active Substance: MYCOPHENOLIC ACID
  16. BIOTIN [Concomitant]
     Active Substance: BIOTIN
  17. BUSPIRONE [Concomitant]
     Active Substance: BUSPIRONE HYDROCHLORIDE

REACTIONS (3)
  - Device related infection [None]
  - Thrombosis [None]
  - Therapy cessation [None]

NARRATIVE: CASE EVENT DATE: 20190730
